FAERS Safety Report 8919818 (Version 2)
Quarter: 2012Q4

REPORT INFORMATION
  Report Type: 
  Country: CA (occurrence: CA)
  Receive Date: 20121121
  Receipt Date: 20121128
  Transmission Date: 20130627
  Serious: Yes (Hospitalization)
  Sender: FDA-Public Use
  Company Number: CA-AMGEN-CANSP2012073898

PATIENT
  Age: 49 Year
  Sex: Female
  Weight: 61.67 kg

DRUGS (7)
  1. NEULASTA [Suspect]
     Indication: PRODUCT USED FOR UNKNOWN INDICATION
     Dosage: 0.6 ml, 24 hours post chemo
     Route: 058
     Dates: start: 20121107
  2. CHEMOTHERAPEUTICS [Concomitant]
     Dosage: UNK
     Dates: start: 20121106
  3. TC [Concomitant]
     Dosage: UNK
     Route: 042
     Dates: start: 20121106
  4. DEXAMETHASONE [Concomitant]
     Dosage: UNK
     Route: 048
     Dates: start: 20121105
  5. KYTRIL [Concomitant]
     Dosage: UNK
     Route: 048
     Dates: start: 20121106
  6. PROCHLORPERAZINE [Concomitant]
     Dosage: UNK
     Route: 048
     Dates: start: 20121108
  7. PANTOLOC                           /01263204/ [Concomitant]
     Dosage: UNK
     Route: 048
     Dates: start: 20121105

REACTIONS (3)
  - Chest pain [Not Recovered/Not Resolved]
  - Skin discomfort [Not Recovered/Not Resolved]
  - Vomiting [Recovered/Resolved]
